FAERS Safety Report 7236021-3 (Version None)
Quarter: 2011Q1

REPORT INFORMATION
  Report Type: 
  Country: None (occurrence: None)
  Receive Date: 20110120
  Receipt Date: 20110118
  Transmission Date: 20110831
  Serious: No
  Sender: FDA-Public Use
  Company Number: DE-BAYER-2010-000870

PATIENT
  Sex: Female

DRUGS (3)
  1. ROPINIROLE [Concomitant]
  2. MIRENA [Suspect]
     Indication: CONTRACEPTION
  3. LEVOTHYROXINE SODIUM [Concomitant]

REACTIONS (1)
  - DEVICE EXPULSION [None]
